FAERS Safety Report 19030780 (Version 1)
Quarter: 2021Q1

REPORT INFORMATION
  Report Type: Spontaneous
  Country: US (occurrence: US)
  Receive Date: 20210319
  Receipt Date: 20210319
  Transmission Date: 20210420
  Serious: Yes (Other)
  Sender: FDA-Public Use
  Company Number: US-SA-2021SA091843

PATIENT
  Age: 93 Year
  Sex: Male

DRUGS (1)
  1. RENVELA [Suspect]
     Active Substance: SEVELAMER CARBONATE
     Indication: RENAL FAILURE
     Dosage: DRUG STRUCTURE DOSAGE : 800 MG
     Dates: start: 2020

REACTIONS (2)
  - Choking [Unknown]
  - Product size issue [Unknown]
